FAERS Safety Report 11184622 (Version 2)
Quarter: 2015Q3

REPORT INFORMATION
  Report Type: Spontaneous
  Country: US (occurrence: US)
  Receive Date: 20150612
  Receipt Date: 20150731
  Transmission Date: 20151125
  Serious: Yes (Hospitalization, Disabling, Other)
  Sender: FDA-Public Use
  Company Number: US-009507513-1506USA004074

PATIENT
  Sex: Female

DRUGS (10)
  1. FOSAMAX [Suspect]
     Active Substance: ALENDRONATE SODIUM
     Indication: OSTEOPOROSIS
     Dosage: 10 MG, UNK
     Route: 048
     Dates: start: 20020221
  2. CALCIUM (UNSPECIFIED) (+) VITAMIN D (UNSPECIFIED) [Concomitant]
     Active Substance: CALCIUM CARBONATE\VITAMIN D
     Dosage: 1 GM WITH 400 UNITS
     Route: 048
     Dates: start: 2000
  3. BONIVA [Suspect]
     Active Substance: IBANDRONATE SODIUM
     Indication: OSTEOPENIA
  4. UBIDECARENONE [Concomitant]
     Active Substance: UBIDECARENONE
     Dosage: 100 MG, UNK
     Route: 048
     Dates: start: 2000
  5. FOSAMAX [Suspect]
     Active Substance: ALENDRONATE SODIUM
     Indication: OSTEOPENIA
     Dosage: 70 UNK, UNK
     Route: 048
     Dates: start: 20020318, end: 20051104
  6. CENTRUM (MINERALS (UNSPECIFIED) (+) VITAMINS (UNSPECIFIED)) [Concomitant]
     Dosage: UNK
     Route: 048
     Dates: start: 2000
  7. SYNTHROID [Concomitant]
     Active Substance: LEVOTHYROXINE SODIUM
     Indication: HYPOTHYROIDISM
     Dosage: UNK
     Route: 048
     Dates: start: 1990
  8. ASCORBIC ACID. [Concomitant]
     Active Substance: ASCORBIC ACID
     Dosage: 500 MG, UNK
     Route: 048
     Dates: start: 2000
  9. BONIVA [Suspect]
     Active Substance: IBANDRONATE SODIUM
     Indication: OSTEOPOROSIS
     Dosage: 150 MG, QM
     Route: 048
     Dates: start: 20051109, end: 201205
  10. VITAMIN E [Concomitant]
     Active Substance: .ALPHA.-TOCOPHEROL
     Dosage: 400 IU, QD
     Dates: start: 2000

REACTIONS (19)
  - Femur fracture [Not Recovered/Not Resolved]
  - Hypotension [Recovered/Resolved]
  - Blood cholesterol increased [Unknown]
  - Arthralgia [Unknown]
  - Cataract [Unknown]
  - Cardiovascular disorder [Unknown]
  - Vitamin D deficiency [Unknown]
  - Atrial septal defect [Unknown]
  - Cerebrovascular accident [Unknown]
  - Low turnover osteopathy [Not Recovered/Not Resolved]
  - Tooth extraction [Unknown]
  - Arthritis [Unknown]
  - Seasonal allergy [Unknown]
  - Sleep apnoea syndrome [Unknown]
  - Hypertension [Unknown]
  - Cellulitis [Unknown]
  - Fall [Unknown]
  - Anaemia postoperative [Unknown]
  - Hernia [Unknown]

NARRATIVE: CASE EVENT DATE: 2005
